FAERS Safety Report 19770575 (Version 2)
Quarter: 2021Q3

REPORT INFORMATION
  Report Type: Spontaneous
  Country: US (occurrence: US)
  Receive Date: 20210831
  Receipt Date: 20210831
  Transmission Date: 20211014
  Serious: No
  Sender: FDA-Public Use
  Company Number: US-BAYER-2021-199482

PATIENT
  Age: 26 Year
  Sex: Female

DRUGS (1)
  1. SKYLA [Suspect]
     Active Substance: LEVONORGESTREL
     Indication: COMPLICATION OF DEVICE REMOVAL
     Dosage: 14 ?G PER DAY, CONTINUOUSLY
     Route: 015
     Dates: end: 201811

REACTIONS (4)
  - Concussion [None]
  - Headache [None]
  - Pain [None]
  - Presyncope [Recovered/Resolved with Sequelae]

NARRATIVE: CASE EVENT DATE: 202108
